FAERS Safety Report 24704033 (Version 1)
Quarter: 2024Q4

REPORT INFORMATION
  Report Type: Other
  Country: JP (occurrence: JP)
  Receive Date: 20241206
  Receipt Date: 20241206
  Transmission Date: 20250115
  Serious: Yes (Death, Hospitalization)
  Sender: BIONPHARMA INC.
  Company Number: JP-Bion-014441

PATIENT
  Age: 76 Year
  Sex: Female

DRUGS (4)
  1. AZITHROMYCIN [Suspect]
     Active Substance: AZITHROMYCIN
     Indication: Meningoencephalitis amoebic
  2. FLUCYTOSINE [Concomitant]
     Active Substance: FLUCYTOSINE
     Indication: Meningoencephalitis amoebic
  3. RIFAMPIN [Concomitant]
     Active Substance: RIFAMPIN
     Indication: Meningoencephalitis amoebic
  4. FLUCONAZOLE [Concomitant]
     Active Substance: FLUCONAZOLE
     Indication: Meningoencephalitis amoebic

REACTIONS (1)
  - Drug ineffective for unapproved indication [Fatal]
